FAERS Safety Report 9216807 (Version 1)
Quarter: 2013Q2

REPORT INFORMATION
  Report Type: Report from Study
  Country: US (occurrence: US)
  Receive Date: 20130408
  Receipt Date: 20130408
  Transmission Date: 20140414
  Serious: Yes (Other)
  Sender: FDA-Public Use
  Company Number: US-BAYER-2013-040986

PATIENT
  Age: 74 Year
  Sex: Male

DRUGS (1)
  1. NEXAVAR [Suspect]
     Indication: RENAL CANCER
     Dosage: 400 MG, BID
     Route: 048
     Dates: start: 20130308, end: 20130327

REACTIONS (7)
  - Feeling hot [None]
  - Abasia [None]
  - Pruritus [None]
  - Erythema [None]
  - Erythema [None]
  - Fatigue [None]
  - Influenza like illness [None]
